FAERS Safety Report 11101095 (Version 1)
Quarter: 2015Q2

REPORT INFORMATION
  Report Type: Spontaneous
  Country: US (occurrence: US)
  Receive Date: 20150508
  Receipt Date: 20150508
  Transmission Date: 20150821
  Serious: No
  Sender: FDA-Public Use
  Company Number: US-ASTRAZENECA-2015SE37643

PATIENT
  Sex: Female
  Weight: 59.9 kg

DRUGS (2)
  1. BYETTA [Suspect]
     Active Substance: EXENATIDE
     Indication: TYPE 2 DIABETES MELLITUS
     Route: 058
     Dates: start: 2009, end: 20150101
  2. BYDUREON [Suspect]
     Active Substance: EXENATIDE
     Indication: TYPE 2 DIABETES MELLITUS
     Route: 058
     Dates: start: 20150101, end: 201502

REACTIONS (5)
  - Diabetes mellitus inadequate control [Unknown]
  - Haemorrhage [Unknown]
  - Pain [Unknown]
  - Injection site nodule [Unknown]
  - Drug ineffective [Unknown]
